FAERS Safety Report 23661265 (Version 16)
Quarter: 2025Q3

REPORT INFORMATION
  Report Type: Spontaneous
  Country: US (occurrence: US)
  Receive Date: 20240322
  Receipt Date: 20250929
  Transmission Date: 20251021
  Serious: Yes (Other)
  Sender: NOVARTIS
  Company Number: US-002147023-NVSC2024US057901

PATIENT
  Age: 30 Year
  Sex: Male

DRUGS (2)
  1. KESIMPTA [Suspect]
     Active Substance: OFATUMUMAB
     Indication: Product used for unknown indication
     Route: 065
  2. ENTRESTO [Suspect]
     Active Substance: SACUBITRIL\VALSARTAN
     Indication: Product used for unknown indication
     Route: 065

REACTIONS (15)
  - Progressive multiple sclerosis [Unknown]
  - Relapsing-remitting multiple sclerosis [Unknown]
  - Vision blurred [Unknown]
  - Pain in extremity [Unknown]
  - Brain fog [Unknown]
  - Memory impairment [Unknown]
  - Mental disorder [Unknown]
  - Central nervous system lesion [Unknown]
  - Eye disorder [Unknown]
  - Influenza like illness [Recovered/Resolved]
  - Cough [Unknown]
  - Respiration abnormal [Unknown]
  - Injection site pain [Unknown]
  - Pyrexia [Unknown]
  - Malaise [Unknown]

NARRATIVE: CASE EVENT DATE: 20230701
